FAERS Safety Report 8011026-3 (Version None)
Quarter: 2011Q4

REPORT INFORMATION
  Report Type: 
  Country: None (occurrence: None)
  Receive Date: 20111228
  Receipt Date: 20111219
  Transmission Date: 20120403
  Serious: Yes (Other)
  Sender: FDA-Public Use
  Company Number: FR-ELI_LILLY_AND_COMPANY-FR201110002375

PATIENT
  Age: 51 Year
  Sex: Female

DRUGS (7)
  1. CYMBALTA [Suspect]
     Dosage: 30 MG, QD
     Route: 048
  2. AMITRIPTYLINE HCL [Concomitant]
     Dosage: UNK
  3. NORDAZ [Concomitant]
     Dosage: UNK
  4. KETOPROFEN [Concomitant]
     Dosage: UNK
  5. CYMBALTA [Suspect]
     Indication: DEPRESSION
     Dosage: 60 MG, QD
     Route: 048
     Dates: start: 20110601
  6. CODEINE PHOSPHATE AND ACETAMINOPHEN [Concomitant]
     Indication: PAIN
     Dosage: UNK
     Route: 048
  7. CANDESARTAN CILEXETIL [Concomitant]
     Indication: HYPERTENSION
     Dosage: 10 MG, UNK
     Route: 048

REACTIONS (7)
  - DRUG DEPENDENCE [None]
  - GAMMA-GLUTAMYLTRANSFERASE INCREASED [None]
  - ANGER [None]
  - HYPERSOMNIA [None]
  - DRUG EFFECT DECREASED [None]
  - DECREASED APPETITE [None]
  - WEIGHT DECREASED [None]
